FAERS Safety Report 5678173-2 (Version None)
Quarter: 2008Q1

REPORT INFORMATION
  Report Type: 
  Country: None (occurrence: None)
  Receive Date: 20080325
  Receipt Date: 20080314
  Transmission Date: 20080703
  Serious: Yes (Other)
  Sender: FDA-Public Use
  Company Number: CA-BAYER-CA-2007-037086

PATIENT
  Age: 47 Year
  Sex: Male
  Weight: 80 kg

DRUGS (10)
  1. BETASERON [Suspect]
     Indication: RELAPSING-REMITTING MULTIPLE SCLEROSIS
     Dosage: TOTAL DAILY DOSE: 8 MIU
     Route: 058
     Dates: start: 20040428, end: 20071014
  2. GABAPENTIN [Concomitant]
     Indication: NEURALGIA
     Route: 048
  3. BACLOFEN [Concomitant]
     Indication: MUSCLE SPASMS
     Dosage: TOTAL DAILY DOSE: 30 MG
     Route: 048
  4. LIPITOR [Concomitant]
     Indication: BLOOD CHOLESTEROL INCREASED
     Dosage: TOTAL DAILY DOSE: 20 MG
     Route: 048
  5. SYMMETREL [Concomitant]
     Indication: FATIGUE
     Dosage: UNIT DOSE: 100 MG
     Route: 048
  6. PARIET [Concomitant]
     Dosage: UNIT DOSE: 20 MG
  7. CELEBREX [Concomitant]
     Indication: PAIN
     Dosage: TOTAL DAILY DOSE: 200 MG
     Route: 048
  8. LORAZEPAM [Concomitant]
     Indication: INSOMNIA
     Route: 048
  9. LYRICA [Concomitant]
     Indication: NEURALGIA
     Route: 048
  10. COPAXONE [Concomitant]
     Dates: start: 20080312

REACTIONS (4)
  - ABDOMINAL DISTENSION [None]
  - ABDOMINAL PAIN [None]
  - HEPATIC STEATOSIS [None]
  - HEPATOSPLENOMEGALY [None]
